FAERS Safety Report 9991919 (Version 1)
Quarter: 2014Q1

REPORT INFORMATION
  Report Type: Spontaneous
  Country: US (occurrence: US)
  Receive Date: 20140310
  Receipt Date: 20140310
  Transmission Date: 20141002
  Serious: No
  Sender: FDA-Public Use
  Company Number: US-VIIV HEALTHCARE LIMITED-A1057273A

PATIENT
  Age: 48 Year
  Sex: Female

DRUGS (3)
  1. TIVICAY [Suspect]
     Indication: HIV INFECTION
     Dosage: 50MG PER DAY
     Route: 048
     Dates: start: 20131215, end: 20140115
  2. TRUVADA [Concomitant]
  3. SYNTHROID [Concomitant]

REACTIONS (3)
  - Tremor [Unknown]
  - Paraesthesia [Unknown]
  - Vulvovaginal discomfort [Unknown]
